FAERS Safety Report 6516808-2 (Version None)
Quarter: 2009Q4

REPORT INFORMATION
  Report Type: 
  Country: None (occurrence: None)
  Receive Date: 20091223
  Receipt Date: 20091216
  Transmission Date: 20100525
  Serious: Yes (Hospitalization)
  Sender: FDA-Public Use
  Company Number: US-ABBOTT-08P-163-0494583-01

PATIENT
  Sex: Female
  Weight: 66 kg

DRUGS (12)
  1. HUMIRA [Suspect]
     Indication: RHEUMATOID ARTHRITIS
     Route: 058
     Dates: start: 20010828, end: 20081215
  2. EVISTA [Concomitant]
     Indication: OSTEOPOROSIS
     Route: 048
     Dates: start: 19990610
  3. FOLIC ACID [Concomitant]
     Indication: VITAMIN SUPPLEMENTATION
     Route: 048
     Dates: start: 20000718
  4. ATENOLOL [Concomitant]
     Indication: HYPERTENSION
     Route: 048
     Dates: start: 19981209
  5. METHOTREXATE [Concomitant]
     Indication: RHEUMATOID ARTHRITIS
     Route: 048
     Dates: start: 19970313, end: 20081210
  6. KEPPRA [Concomitant]
     Indication: CONVULSION
     Dates: start: 20070911
  7. ASPIRIN [Concomitant]
     Indication: CARDIOVASCULAR EVENT PROPHYLAXIS
     Dates: start: 20070723
  8. CELEBREX [Concomitant]
     Indication: RHEUMATOID ARTHRITIS
     Dates: start: 19990225
  9. TENORMIN [Concomitant]
     Indication: HYPERTENSION
     Route: 048
     Dates: start: 19981209
  10. MIDRIN [Concomitant]
     Indication: SINUSITIS
     Route: 048
     Dates: start: 20030515
  11. CENTRUM SILVER [Concomitant]
     Indication: VITAMIN SUPPLEMENTATION
     Route: 048
  12. VITAMIN E [Concomitant]
     Indication: VITAMIN SUPPLEMENTATION
     Route: 048

REACTIONS (1)
  - NECROTISING FASCIITIS [None]
